FAERS Safety Report 7361341-1 (Version None)
Quarter: 2011Q1

REPORT INFORMATION
  Report Type: 
  Country: None (occurrence: None)
  Receive Date: 20110318
  Receipt Date: 20110314
  Transmission Date: 20110831
  Serious: Yes (Hospitalization)
  Sender: FDA-Public Use
  Company Number: B0705698A

PATIENT
  Sex: Female

DRUGS (6)
  1. AMAREL [Concomitant]
     Dosage: 2MG PER DAY
     Route: 048
  2. ELISOR [Concomitant]
     Dosage: 20MG PER DAY
     Route: 048
  3. KARDEGIC [Concomitant]
     Dosage: 160MG PER DAY
     Route: 048
  4. AUGMENTIN [Suspect]
     Route: 048
     Dates: start: 20100921, end: 20100921
  5. RAMIPRIL [Concomitant]
     Dosage: 5MG PER DAY
     Route: 048
  6. LERCAN [Concomitant]
     Dosage: 10MG PER DAY
     Route: 048

REACTIONS (4)
  - PAINFUL RESPIRATION [None]
  - RASH [None]
  - HYPOTENSION [None]
  - ANAPHYLACTIC SHOCK [None]
